FAERS Safety Report 4290493-5 (Version None)
Quarter: 2004Q1

REPORT INFORMATION
  Report Type: 
  Country: None (occurrence: None)
  Receive Date: 20040126
  Receipt Date: 20031021
  Transmission Date: 20041129
  Serious: No
  Sender: FDA-Public Use
  Company Number: USA030434329

PATIENT
  Age: 58 Year
  Sex: Female
  Weight: 48 kg

DRUGS (5)
  1. FORTEO [Suspect]
     Indication: OSTEOPOROSIS
     Dosage: 20 UG/DAY
     Dates: start: 20030401
  2. CALCIUM [Concomitant]
  3. EXCEDRIN [Concomitant]
  4. MIDRIN [Concomitant]
  5. PARACETAMOL/CAFFEINE [Concomitant]

REACTIONS (7)
  - DIZZINESS [None]
  - FEELING JITTERY [None]
  - INJECTION SITE ERYTHEMA [None]
  - INJECTION SITE PAIN [None]
  - INJECTION SITE URTICARIA [None]
  - MUSCLE TWITCHING [None]
  - WEIGHT INCREASED [None]
